FAERS Safety Report 21156836 (Version 1)
Quarter: 2022Q3

REPORT INFORMATION
  Report Type: Spontaneous
  Country: US (occurrence: None)
  Receive Date: 20220801
  Receipt Date: 20220801
  Transmission Date: 20221027
  Serious: Yes (Other)
  Sender: FDA-Public Use
  Company Number: None

PATIENT
  Age: 42 Year
  Sex: Male

DRUGS (1)
  1. CAPECITABINE [Suspect]
     Active Substance: CAPECITABINE
     Dosage: 3600MG DAILY ORAL?
     Route: 048
     Dates: start: 202207

REACTIONS (1)
  - Off label use [None]

NARRATIVE: CASE EVENT DATE: 20220801
